FAERS Safety Report 16476690 (Version 1)
Quarter: 2019Q2

REPORT INFORMATION
  Report Type: Spontaneous
  Country: US (occurrence: US)
  Receive Date: 20190626
  Receipt Date: 20190626
  Transmission Date: 20190711
  Serious: No
  Sender: FDA-Public Use
  Company Number: US-PERRIGO-19US005656

PATIENT
  Age: 28 Year
  Sex: Male

DRUGS (2)
  1. GUAIFENESIN-DEXTROMETHORPHAN HYDROBROMIDE [Suspect]
     Active Substance: DEXTROMETHORPHAN HYDROBROMIDE\GUAIFENESIN
     Indication: HYPERSENSITIVITY
     Dosage: 1 TABLET, BID
     Route: 048
     Dates: start: 201904, end: 201904
  2. GUAIFENESIN-DEXTROMETHORPHAN HYDROBROMIDE [Suspect]
     Active Substance: DEXTROMETHORPHAN HYDROBROMIDE\GUAIFENESIN
     Indication: NASOPHARYNGITIS

REACTIONS (2)
  - Incorrect product administration duration [Recovered/Resolved]
  - Drug ineffective [Unknown]

NARRATIVE: CASE EVENT DATE: 201904
